FAERS Safety Report 7576102-8 (Version None)
Quarter: 2011Q2

REPORT INFORMATION
  Report Type: 
  Country: None (occurrence: None)
  Receive Date: 20110628
  Receipt Date: 20110117
  Transmission Date: 20111010
  Serious: Yes (Hospitalization, Other)
  Sender: FDA-Public Use
  Company Number: US-BAYER-201036481NA

PATIENT
  Age: 41 Year
  Weight: 83.9 kg

DRUGS (1)
  1. YASMIN [Suspect]
     Route: 048
     Dates: start: 20020517, end: 20050615

REACTIONS (13)
  - PREGNANCY [None]
  - GALLBLADDER DISORDER [None]
  - CHOLELITHIASIS [None]
  - PANCREATITIS [None]
  - CHOLECYSTITIS CHRONIC [None]
  - NAUSEA [None]
  - ABDOMINAL PAIN UPPER [None]
  - BILE DUCT STONE [None]
  - IRON DEFICIENCY ANAEMIA [None]
  - FIBROSIS [None]
  - ABDOMINAL ADHESIONS [None]
  - ABORTION SPONTANEOUS [None]
  - CAESAREAN SECTION [None]
